FAERS Safety Report 6945915-5 (Version None)
Quarter: 2010Q3

REPORT INFORMATION
  Report Type: 
  Country: None (occurrence: None)
  Receive Date: 20100827
  Receipt Date: 20100817
  Transmission Date: 20110219
  Serious: Yes (Death)
  Sender: FDA-Public Use
  Company Number: A0873467A

PATIENT
  Age: 48 Year
  Sex: Male
  Weight: 77.3 kg

DRUGS (2)
  1. ARZERRA [Suspect]
     Indication: LYMPHOMA
     Dosage: 1000MG WEEKLY
     Route: 065
     Dates: start: 20100610, end: 20100701
  2. PREDNISONE [Concomitant]
     Indication: HAEMOLYTIC ANAEMIA
     Dosage: 80MG UNKNOWN
     Route: 065

REACTIONS (1)
  - SEPSIS [None]
